FAERS Safety Report 4331955-1 (Version None)
Quarter: 2004Q2

REPORT INFORMATION
  Report Type: 
  Country: None (occurrence: None)
  Receive Date: 20040405
  Receipt Date: 20030707
  Transmission Date: 20050107
  Serious: No
  Sender: FDA-Public Use
  Company Number: US-GLAXOSMITHKLINE-A0416191A

PATIENT
  Age: 60 Year
  Sex: Female

DRUGS (3)
  1. SEREVENT [Suspect]
     Dosage: 2PUFF TWICE PER DAY
     Route: 055
  2. FLOVENT [Concomitant]
  3. ALBUTEROL [Concomitant]
     Route: 055

REACTIONS (4)
  - CARDIOMEGALY [None]
  - COUGH [None]
  - DYSPNOEA [None]
  - PALPITATIONS [None]
